FAERS Safety Report 18785634 (Version 1)
Quarter: 2021Q1

REPORT INFORMATION
  Report Type: Spontaneous
  Country: US (occurrence: US)
  Receive Date: 20210125
  Receipt Date: 20210125
  Transmission Date: 20210419
  Serious: Yes (Other)
  Sender: FDA-Public Use
  Company Number: US-ACCORD-215570

PATIENT
  Age: 2 Year
  Sex: Male

DRUGS (3)
  1. CARBOPLATIN. [Suspect]
     Active Substance: CARBOPLATIN
     Indication: RETINOBLASTOMA
     Route: 013
  2. TOPOTECAN [Suspect]
     Active Substance: TOPOTECAN HYDROCHLORIDE
     Indication: RETINOBLASTOMA
     Route: 013
  3. MELPHALAN. [Suspect]
     Active Substance: MELPHALAN
     Indication: RETINOBLASTOMA
     Route: 013

REACTIONS (7)
  - Off label use [Unknown]
  - Orbital oedema [Recovered/Resolved]
  - Periorbital oedema [Recovered/Resolved]
  - Orbital haemorrhage [Recovered/Resolved]
  - Myositis [Recovered/Resolved]
  - Intraocular pressure increased [Recovered/Resolved]
  - Exophthalmos [Recovered/Resolved]
